FAERS Safety Report 19364634 (Version 2)
Quarter: 2021Q2

REPORT INFORMATION
  Report Type: Spontaneous
  Country: IT (occurrence: IT)
  Receive Date: 20210602
  Receipt Date: 20210621
  Transmission Date: 20210717
  Serious: Yes (Hospitalization)
  Sender: FDA-Public Use
  Company Number: IT-ELI_LILLY_AND_COMPANY-IT202105009703

PATIENT
  Age: 61 Year
  Sex: Male
  Weight: 72 kg

DRUGS (2)
  1. ALIMTA [Suspect]
     Active Substance: PEMETREXED DISODIUM
     Indication: LUNG ADENOCARCINOMA
     Dosage: 925 MG, CYCLICAL
     Route: 042
     Dates: start: 20210326
  2. KEYTRUDA [Suspect]
     Active Substance: PEMBROLIZUMAB
     Indication: LUNG ADENOCARCINOMA
     Dosage: 200 MG, CYCLICAL
     Route: 042
     Dates: start: 20210326

REACTIONS (4)
  - Renal hypertension [Recovering/Resolving]
  - Hypertension [Recovering/Resolving]
  - Anaemia [Unknown]
  - Renal failure [Recovering/Resolving]

NARRATIVE: CASE EVENT DATE: 20210507
